FAERS Safety Report 6568519-5 (Version None)
Quarter: 2010Q1

REPORT INFORMATION
  Report Type: 
  Country: None (occurrence: None)
  Receive Date: 20100203
  Receipt Date: 20100125
  Transmission Date: 20100710
  Serious: Yes (Other)
  Sender: FDA-Public Use
  Company Number: JP-BRISTOL-MYERS SQUIBB COMPANY-14949788

PATIENT
  Sex: Male

DRUGS (2)
  1. ABILIFY [Suspect]
     Indication: SCHIZOPHRENIA
     Dosage: SWITCHED TO 6MG/DAY AND THEN INCREASED TO 9MG/D
     Route: 048
  2. BROMAZEPAM [Concomitant]

REACTIONS (2)
  - DELUSION [None]
  - HALLUCINATION [None]
